FAERS Safety Report 25078402 (Version 1)
Quarter: 2025Q1

REPORT INFORMATION
  Report Type: Spontaneous
  Country: US (occurrence: None)
  Receive Date: 20250313
  Receipt Date: 20250313
  Transmission Date: 20250408
  Serious: Yes (unspecified)
  Sender: FDA-CTU
  Company Number: None

PATIENT
  Age: 50 Year
  Sex: Male
  Weight: 69.4 kg

DRUGS (5)
  1. OXALIPLATIN [Suspect]
     Active Substance: OXALIPLATIN
     Indication: Gastric cancer
     Route: 042
     Dates: start: 20241126
  2. leucovorin 332mg IV [Concomitant]
     Dates: start: 20241126
  3. diphenhydramine 25mg IV [Concomitant]
     Dates: start: 20241126
  4. aloxi 0.25mg IV [Concomitant]
     Dates: start: 20241126
  5. dexamethasone 12mg IVPB [Concomitant]
     Dates: start: 20241126

REACTIONS (3)
  - Myalgia [None]
  - Muscle spasms [None]
  - Pain [None]

NARRATIVE: CASE EVENT DATE: 20250312
